FAERS Safety Report 19449022 (Version 4)
Quarter: 2024Q4

REPORT INFORMATION
  Report Type: Spontaneous
  Country: US (occurrence: US)
  Receive Date: 20210622
  Receipt Date: 20241104
  Transmission Date: 20250115
  Serious: No
  Sender: PFIZER
  Company Number: US-PFIZER INC-2021602623

PATIENT
  Age: 6 Year
  Sex: Female
  Weight: 20.41 kg

DRUGS (5)
  1. GENOTROPIN [Suspect]
     Active Substance: SOMATROPIN
     Indication: Growth hormone deficiency
     Dosage: 0.6 MG, 1X/DAY
     Dates: start: 201506
  2. KEPPRA [Concomitant]
     Active Substance: LEVETIRACETAM
     Indication: Seizure
     Dosage: 3 MG, 2X/DAY
  3. VIMPAT [Concomitant]
     Active Substance: LACOSAMIDE
     Indication: Seizure
     Dosage: UNK
  4. HYDROCORTISONE [Concomitant]
     Active Substance: HYDROCORTISONE
     Indication: Adrenal insufficiency
     Dosage: UNK
  5. SYNTHROID [Concomitant]
     Active Substance: LEVOTHYROXINE SODIUM
     Indication: Thyroid disorder
     Dosage: UNK

REACTIONS (1)
  - Product dose omission issue [Unknown]

NARRATIVE: CASE EVENT DATE: 20210522
